FAERS Safety Report 21744466 (Version 1)
Quarter: 2022Q4

REPORT INFORMATION
  Report Type: Report from Study
  Country: JP (occurrence: JP)
  Receive Date: 20221218
  Receipt Date: 20221218
  Transmission Date: 20230113
  Serious: Yes (Hospitalization)
  Sender: FDA-Public Use
  Company Number: JP-ABBVIE-21K-087-4107007-00

PATIENT
  Age: 74 Year
  Sex: Male

DRUGS (2)
  1. CARBIDOPA\LEVODOPA [Suspect]
     Active Substance: CARBIDOPA\LEVODOPA
     Indication: Parkinson^s disease
     Route: 050
     Dates: start: 20210707
  2. CARBIDOPA\LEVODOPA [Suspect]
     Active Substance: CARBIDOPA\LEVODOPA

REACTIONS (11)
  - Hospitalisation [Unknown]
  - Movement disorder [Unknown]
  - Accidental overdose [Unknown]
  - Mobility decreased [Unknown]
  - Posture abnormal [Unknown]
  - Wheelchair user [Unknown]
  - Device connection issue [Unknown]
  - Therapeutic response unexpected [Unknown]
  - Tremor [Unknown]
  - Stoma site discharge [Not Recovered/Not Resolved]
  - Dyskinesia [Unknown]

NARRATIVE: CASE EVENT DATE: 20211001
